FAERS Safety Report 8790198 (Version 2)
Quarter: 2013Q4

REPORT INFORMATION
  Report Type: Spontaneous
  Country: US (occurrence: US)
  Receive Date: 20120917
  Receipt Date: 20131105
  Transmission Date: 20140711
  Serious: Yes (Hospitalization, Other)
  Sender: FDA-Public Use
  Company Number: US-009507513-1209USA005839

PATIENT
  Age: 61 Year
  Sex: Male

DRUGS (3)
  1. PEGINTRON [Suspect]
     Dosage: 80MCG/0.5ML
     Route: 058
     Dates: start: 20120725, end: 20120808
  2. REBETOL [Suspect]
  3. VICTRELIS [Suspect]

REACTIONS (2)
  - Blood test abnormal [Unknown]
  - Convulsion [Unknown]
